FAERS Safety Report 4376211-0 (Version None)
Quarter: 2004Q2

REPORT INFORMATION
  Report Type: 
  Country: None (occurrence: None)
  Receive Date: 20040607
  Receipt Date: 20040211
  Transmission Date: 20050107
  Serious: Yes (Other)
  Sender: FDA-Public Use
  Company Number: US-SHR-04-021073

PATIENT
  Age: 48 Year
  Sex: Female
  Weight: 62.1 kg

DRUGS (10)
  1. FLUDARA [Suspect]
     Indication: ALLOGENIC BONE MARROW TRANSPLANTATION THERAPY
     Dosage: 30 MG/M2, INTRAVENOUS
     Route: 042
     Dates: start: 20040204, end: 20040208
  2. CAMPATH [Suspect]
     Indication: ALLOGENIC BONE MARROW TRANSPLANTATION THERAPY
     Dosage: 20 MG/DAY, INTRAVENOUS
     Route: 042
     Dates: start: 20040203, end: 20040205
  3. AMIFOSTINE (AMIFOSTINE) [Suspect]
     Indication: ALLOGENIC BONE MARROW TRANSPLANTATION THERAPY
     Dosage: 740 MG/M2
     Dates: start: 20040209, end: 20040209
  4. MELPHALAN (MELPHALAN) [Suspect]
     Indication: ALLOGENIC BONE MARROW TRANSPLANTATION THERAPY
     Dates: start: 20040209, end: 20040209
  5. SPIRONOLACTONE [Concomitant]
  6. BENADRYL ^WARNER-LAMBERT^ (DIPHENHYDRAMINE HYDROCHLORIDE) [Concomitant]
  7. TYLENOL /USA/ [Concomitant]
  8. SODIUM BICARBONATE IN PLASTIC CONTAINER [Concomitant]
  9. BACTRIM [Concomitant]
  10. ZOVIRAX [Concomitant]

REACTIONS (2)
  - COMA [None]
  - CONVULSION [None]
